FAERS Safety Report 5306777-5 (Version None)
Quarter: 2007Q1

REPORT INFORMATION
  Report Type: 
  Country: None (occurrence: None)
  Receive Date: 20070201
  Receipt Date: 20061202
  Transmission Date: 20070707
  Serious: No
  Sender: FDA-Public Use
  Company Number: 2006PV026274

PATIENT
  Age: 64 Year
  Sex: Female
  Weight: 81.6475 kg

DRUGS (9)
  1. BYETTA [Suspect]
     Indication: DIABETES MELLITUS NON-INSULIN-DEPENDENT
     Dosage: 5 MCG; BID; SC
     Route: 058
     Dates: start: 20061129, end: 20061219
  2. METFORMIN HCL [Concomitant]
  3. AMARYL [Concomitant]
  4. METFORMIN HCL [Concomitant]
  5. ZETIA [Concomitant]
  6. FLU VACCINE [Concomitant]
  7. PNEUMONIA VACCINE [Concomitant]
  8. ZANTAC [Concomitant]
  9. PREVACID [Concomitant]

REACTIONS (5)
  - ABDOMINAL DISTENSION [None]
  - BLOOD GLUCOSE DECREASED [None]
  - BLOOD GLUCOSE INCREASED [None]
  - FLATULENCE [None]
  - INJECTION SITE HAEMORRHAGE [None]
